FAERS Safety Report 4512033-5 (Version None)
Quarter: 2004Q4

REPORT INFORMATION
  Report Type: 
  Country: None (occurrence: None)
  Receive Date: 20041123
  Receipt Date: 20041112
  Transmission Date: 20050328
  Serious: Yes (Other)
  Sender: FDA-Public Use
  Company Number: 240489

PATIENT
  Age: 66 Year
  Sex: Male

DRUGS (16)
  1. PRANDIN [Suspect]
     Indication: INSULIN-REQUIRING TYPE II DIABETES MELLITUS
     Dosage: 5 MG, TID, PER ORAL
     Route: 048
  2. LOPID [Concomitant]
  3. HYZAAR [Concomitant]
  4. INDERAL [Concomitant]
  5. DEMADEX [Concomitant]
  6. NIACIN [Concomitant]
  7. CLUCOPHAGE   ABIC [Concomitant]
  8. ALLEGRA-D [Concomitant]
  9. PAXIL [Concomitant]
  10. LANTUS [Concomitant]
  11. PRAVACHOL [Concomitant]
  12. K-DUR 10 [Concomitant]
  13. SELENIUM (SELENIUM) [Concomitant]
  14. ACETYLSALICYLIC ACID SRT [Concomitant]
  15. XANAX [Concomitant]
  16. HUMALOG [Concomitant]

REACTIONS (5)
  - BLOOD GLUCOSE INCREASED [None]
  - LOSS OF CONSCIOUSNESS [None]
  - MEDICATION ERROR [None]
  - PROSTATE CANCER [None]
  - RECURRENT CANCER [None]
